FAERS Safety Report 21860654 (Version 1)
Quarter: 2023Q1

REPORT INFORMATION
  Report Type: Report from Study
  Country: ES (occurrence: ES)
  Receive Date: 20230113
  Receipt Date: 20230113
  Transmission Date: 20230418
  Serious: Yes (Hospitalization)
  Sender: FDA-Public Use
  Company Number: None

PATIENT
  Age: 83 Year
  Sex: Male

DRUGS (10)
  1. TENOFOVIR DISOPROXIL [Suspect]
     Active Substance: TENOFOVIR DISOPROXIL
     Indication: Product used for unknown indication
     Dosage: UNK
     Route: 048
     Dates: start: 20200520, end: 20220924
  2. JENTADUETO [Concomitant]
     Active Substance: LINAGLIPTIN\METFORMIN HYDROCHLORIDE
     Dosage: 1/12 HOURS
     Route: 048
     Dates: start: 20150826
  3. Dutasterida/tamsulosina cinfamed [Concomitant]
     Dosage: 1/24 HRS
     Route: 048
     Dates: start: 20220721
  4. FUROSEMIDE [Concomitant]
     Active Substance: FUROSEMIDE
     Dosage: 1/24 HRS
     Route: 042
     Dates: start: 20220917
  5. DECAPEPTYL SEMESTRAL [Concomitant]
     Dosage: 1/180 DAYS
     Route: 030
     Dates: start: 20220506
  6. Deprax [Concomitant]
     Dosage: 1/24 HRS
     Route: 048
     Dates: start: 20220827, end: 20220924
  7. Acido acetilsalicilico Aristo [Concomitant]
     Dosage: 1/24 HRS
     Route: 048
     Dates: start: 20220103, end: 20220924
  8. Olmesartan/Amlodipino/Hidroclorotiazida Cinfamed [Concomitant]
     Dosage: 1/24 HOURS
     Route: 048
     Dates: start: 20150826, end: 20220924
  9. Silodosina cinfa [Concomitant]
     Dosage: 1/24 HRS
     Route: 048
     Dates: start: 20211216
  10. MIRTAZAPINA QUALIGEN [Concomitant]
     Dosage: 1/24 HRS
     Route: 048
     Dates: start: 20210908

REACTIONS (3)
  - Mitochondrial toxicity [Recovered/Resolved]
  - Hyperlactacidaemia [Recovered/Resolved]
  - Myopathy [Recovering/Resolving]

NARRATIVE: CASE EVENT DATE: 20220922
